FAERS Safety Report 15394439 (Version 1)
Quarter: 2018Q3

REPORT INFORMATION
  Report Type: Spontaneous
  Country: US (occurrence: US)
  Receive Date: 20180918
  Receipt Date: 20180918
  Transmission Date: 20181010
  Serious: Yes (Other)
  Sender: FDA-Public Use
  Company Number: US-ABBVIE-18K-163-2482288-00

PATIENT
  Sex: Female

DRUGS (2)
  1. VENETOCLAX. [Suspect]
     Active Substance: VENETOCLAX
     Indication: PRODUCT USED FOR UNKNOWN INDICATION
     Route: 048
  2. KYMRIAH [Suspect]
     Active Substance: TISAGENLECLEUCEL
     Indication: DIFFUSE LARGE B-CELL LYMPHOMA
     Dosage: DOSE 0.6X10 TO THE 8TH
     Route: 065

REACTIONS (8)
  - Hydronephrosis [Unknown]
  - Gastrointestinal toxicity [Unknown]
  - Retroperitoneal mass [Unknown]
  - Pelvic neoplasm [Unknown]
  - Diffuse large B-cell lymphoma [Unknown]
  - Bone marrow failure [Unknown]
  - Follicle centre lymphoma, follicular grade I, II, III recurrent [Unknown]
  - Gastrointestinal inflammation [Unknown]
